FAERS Safety Report 4675869-6 (Version None)
Quarter: 2005Q2

REPORT INFORMATION
  Report Type: 
  Country: None (occurrence: None)
  Receive Date: 20050526
  Receipt Date: 20050526
  Transmission Date: 20051028
  Serious: Yes (Life-Threatening, Hospitalization)
  Sender: FDA-Public Use
  Company Number: None

PATIENT
  Sex: Female
  Weight: 75.2971 kg

DRUGS (1)
  1. DESOGEN [Suspect]
     Indication: ACNE
     Dosage: DAILY  - ORAL
     Route: 048
     Dates: start: 20020801, end: 20050401

REACTIONS (1)
  - PULMONARY EMBOLISM [None]
